FAERS Safety Report 21591530 (Version 1)
Quarter: 2022Q4

REPORT INFORMATION
  Report Type: Spontaneous
  Country: US (occurrence: US)
  Receive Date: 20221114
  Receipt Date: 20221114
  Transmission Date: 20230112
  Serious: Yes (Death, Other)
  Sender: FDA-Public Use
  Company Number: US-INSUD PHARMA-2211US04652

PATIENT

DRUGS (9)
  1. MIDODRINE HYDROCHLORIDE [Suspect]
     Active Substance: MIDODRINE HYDROCHLORIDE
     Indication: Vasopressive therapy
     Dosage: POD 12, DOSING INCREASED TO 20 MG THREE TIMES DAILY
  2. MIDODRINE HYDROCHLORIDE [Suspect]
     Active Substance: MIDODRINE HYDROCHLORIDE
     Dosage: POSTOP, STABLE DOSE
     Route: 065
  3. NOREPINEPHRINE [Suspect]
     Active Substance: NOREPINEPHRINE
     Indication: Vasopressive therapy
     Dosage: POD 16, MEAN DOSE OF 0.06 MCG/KG/MIN
     Route: 065
  4. NOREPINEPHRINE [Suspect]
     Active Substance: NOREPINEPHRINE
     Dosage: POD 12, TARGET SYSTOLIC BLOOD PRESSURES OF }90 MM HG
     Route: 065
  5. NOREPINEPHRINE [Suspect]
     Active Substance: NOREPINEPHRINE
     Dosage: POSTOP, DOSES RANGED FROM 0.04 TO 0.09 MCG/KG/MIN
     Route: 065
  6. VASOPRESSIN [Suspect]
     Active Substance: VASOPRESSIN
     Indication: Vasopressive therapy
     Dosage: POD 16, 0.04 UNITS/MIN
     Route: 065
  7. VASOPRESSIN [Suspect]
     Active Substance: VASOPRESSIN
     Dosage: POSTOP, UNK
  8. CARBOHYDRATES\FATTY ACIDS\MINERALS\PROTEIN\VITAMINS [Suspect]
     Active Substance: CARBOHYDRATES\FATTY ACIDS\MINERALS\PROTEIN\VITAMINS
     Indication: Nutritional supplementation
     Dosage: POD 16, INCREASED TO 30 ML/J
  9. CARBOHYDRATES\FATTY ACIDS\MINERALS\PROTEIN\VITAMINS [Suspect]
     Active Substance: CARBOHYDRATES\FATTY ACIDS\MINERALS\PROTEIN\VITAMINS
     Dosage: INITIALLY POSTOP, 10-20 ML/

REACTIONS (5)
  - Intestinal ischaemia [Fatal]
  - Pneumatosis intestinalis [Unknown]
  - Intestinal dilatation [Unknown]
  - Abdominal distension [Unknown]
  - Abdominal tenderness [Unknown]
